FAERS Safety Report 23487121 (Version 3)
Quarter: 2024Q2

REPORT INFORMATION
  Report Type: Report from Study
  Country: US (occurrence: US)
  Receive Date: 20240206
  Receipt Date: 20240607
  Transmission Date: 20240716
  Serious: No
  Sender: FDA-Public Use
  Company Number: US-BRISTOL-MYERS SQUIBB COMPANY-2024-017874

PATIENT
  Age: 38 Year
  Sex: Female
  Weight: 115.67 kg

DRUGS (5)
  1. ZEPOSIA [Suspect]
     Active Substance: OZANIMOD HYDROCHLORIDE
     Indication: Multiple sclerosis
     Route: 048
     Dates: start: 202204, end: 20230623
  2. GLATIRAMER [Suspect]
     Active Substance: GLATIRAMER
     Indication: Product used for unknown indication
     Route: 058
     Dates: start: 20230705, end: 20240126
  3. SERTRALINE [Concomitant]
     Active Substance: SERTRALINE HYDROCHLORIDE
     Indication: Product used for unknown indication
  4. COPPER GLUCONATE [Concomitant]
     Active Substance: COPPER GLUCONATE
     Indication: Copper deficiency
     Route: 048
  5. VITAMIN B12 [Concomitant]
     Active Substance: CYANOCOBALAMIN
     Indication: Vitamin B12 deficiency
     Route: 048

REACTIONS (2)
  - Maternal exposure during pregnancy [Recovered/Resolved]
  - Normal newborn [Unknown]
